FAERS Safety Report 10925023 (Version 5)
Quarter: 2015Q3

REPORT INFORMATION
  Report Type: Spontaneous
  Country: US (occurrence: US)
  Receive Date: 20150318
  Receipt Date: 20150723
  Transmission Date: 20151125
  Serious: Yes (Other)
  Sender: FDA-Public Use
  Company Number: US-JNJFOC-20150110168

PATIENT
  Age: 59 Year
  Sex: Female
  Weight: 56.7 kg

DRUGS (11)
  1. LEVAQUIN [Suspect]
     Active Substance: LEVOFLOXACIN
     Indication: DIVERTICULITIS
     Route: 048
     Dates: start: 20140729, end: 20140805
  2. METRONIDAZOLE. [Concomitant]
     Active Substance: METRONIDAZOLE
     Indication: DIVERTICULITIS
     Dates: start: 20140108, end: 20140808
  3. LEVAQUIN [Suspect]
     Active Substance: LEVOFLOXACIN
     Indication: ABDOMINAL PAIN
     Route: 048
     Dates: start: 20140108, end: 20140508
  4. LEVAQUIN [Suspect]
     Active Substance: LEVOFLOXACIN
     Indication: ABDOMINAL PAIN
     Route: 048
     Dates: start: 20140729, end: 20140805
  5. LEVAQUIN [Suspect]
     Active Substance: LEVOFLOXACIN
     Indication: DIVERTICULITIS
     Route: 048
     Dates: start: 20140108, end: 20140508
  6. LEVAQUIN [Suspect]
     Active Substance: LEVOFLOXACIN
     Indication: ABDOMINAL PAIN
     Route: 048
     Dates: start: 20140727, end: 20140803
  7. CALCIUM [Concomitant]
     Active Substance: CALCIUM
     Indication: PRODUCT USED FOR UNKNOWN INDICATION
     Route: 065
  8. ATORVASTATIN [Concomitant]
     Active Substance: ATORVASTATIN
     Indication: HYPERLIPIDAEMIA
     Dosage: THE PATIENT HAD CONTINUED THE DRUGS FOR SEVEN YEARS BEFORE WITHDRAWING.
     Route: 065
  9. IRON [Concomitant]
     Active Substance: IRON
     Indication: PRODUCT USED FOR UNKNOWN INDICATION
     Route: 065
  10. LEVAQUIN [Suspect]
     Active Substance: LEVOFLOXACIN
     Indication: DIVERTICULITIS
     Route: 048
     Dates: start: 20140727, end: 20140803
  11. METAMUCIL [Concomitant]
     Active Substance: PLANTAGO SEED
     Dosage: 1 TSP OF MUTAMUCIL
     Route: 065

REACTIONS (6)
  - Tendon rupture [Recovered/Resolved with Sequelae]
  - Musculoskeletal pain [Recovering/Resolving]
  - Muscular weakness [Recovering/Resolving]
  - Tendon pain [Recovered/Resolved]
  - Tendonitis [Recovered/Resolved with Sequelae]
  - Product use issue [Unknown]

NARRATIVE: CASE EVENT DATE: 20140803
